FAERS Safety Report 5423796-9 (Version None)
Quarter: 2007Q3

REPORT INFORMATION
  Report Type: 
  Country: None (occurrence: None)
  Receive Date: 20070727
  Receipt Date: 20060405
  Transmission Date: 20080115
  Serious: Yes (Hospitalization, Other)
  Sender: FDA-Public Use
  Company Number: THYM-10939

PATIENT
  Age: 20 Year
  Sex: Male

DRUGS (15)
  1. THYMOGLOBULIN [Suspect]
     Indication: RENAL TRANSPLANT
     Dosage: 100 MG QD IV
     Route: 042
     Dates: start: 20041012, end: 20041014
  2. THYMOGLOBULIN [Suspect]
     Indication: RENAL TRANSPLANT
     Dosage: 50 MG QD IV
     Route: 042
     Dates: start: 20041015, end: 20041015
  3. CELLCEPT [Concomitant]
  4. PROGRAF [Concomitant]
  5. PREDNISONE [Concomitant]
  6. VALCYTE [Concomitant]
  7. BACTRIM [Concomitant]
  8. MYCELEX [Concomitant]
  9. DILANTIN [Concomitant]
  10. NORVASC [Concomitant]
  11. LOPRESSOR [Concomitant]
  12. OSCAL-D [Concomitant]
  13. FOLIC ACID [Concomitant]
  14. ZANTAC 150 [Concomitant]
  15. COLACE [Concomitant]

REACTIONS (1)
  - KIDNEY TRANSPLANT REJECTION [None]
